FAERS Safety Report 17762539 (Version 2)
Quarter: 2020Q2

REPORT INFORMATION
  Report Type: Spontaneous
  Country: US (occurrence: US)
  Receive Date: 20200508
  Receipt Date: 20200602
  Transmission Date: 20200714
  Serious: Yes (Death, Other)
  Sender: FDA-Public Use
  Company Number: US-AMGEN-USASP2020072329

PATIENT
  Age: 92 Year
  Sex: Male
  Weight: 53.06 kg

DRUGS (1)
  1. PROLIA [Suspect]
     Active Substance: DENOSUMAB
     Indication: PRODUCT USED FOR UNKNOWN INDICATION
     Dosage: UNK
     Route: 065

REACTIONS (3)
  - Death [Fatal]
  - Confusional state [Unknown]
  - Dyspnoea [Unknown]

NARRATIVE: CASE EVENT DATE: 20181217
